FAERS Safety Report 9221918 (Version 5)
Quarter: 2013Q3

REPORT INFORMATION
  Report Type: Spontaneous
  Country: US (occurrence: US)
  Receive Date: 20130410
  Receipt Date: 20130722
  Transmission Date: 20140515
  Serious: No
  Sender: FDA-Public Use
  Company Number: US-PFIZER INC-2013108398

PATIENT
  Age: 64 Year
  Sex: Male

DRUGS (3)
  1. INLYTA [Suspect]
     Indication: RENAL CANCER
     Dosage: 5 MG, 2X/DAY
     Dates: start: 20130315
  2. INLYTA [Suspect]
     Dosage: 1 MG TABLETS, 4 TABLETS TWICE A DAY
     Dates: start: 20130314
  3. INLYTA [Suspect]
     Dosage: 4 MG, UNK (1 MG TABLET)

REACTIONS (8)
  - Blood pressure abnormal [Unknown]
  - Muscle spasms [Unknown]
  - Fatigue [Unknown]
  - Asthenia [Unknown]
  - Diarrhoea [Unknown]
  - Constipation [Unknown]
  - Arthralgia [Unknown]
  - Dysphonia [Unknown]
